FAERS Safety Report 8066386-4 (Version None)
Quarter: 2012Q1

REPORT INFORMATION
  Report Type: 
  Country: None (occurrence: None)
  Receive Date: 20120124
  Receipt Date: 20120124
  Transmission Date: 20120608
  Serious: Yes (Life-Threatening, Hospitalization)
  Sender: FDA-Public Use
  Company Number: None

PATIENT
  Age: 65 Year
  Sex: Female
  Weight: 58.967 kg

DRUGS (2)
  1. CYTOXAN [Suspect]
     Indication: NON-HODGKIN'S LYMPHOMA
     Dosage: UNKNOWN
     Dates: start: 20031029, end: 20040211
  2. POSSIBLY OTHER CHEMO DRUGS [Concomitant]
     Dosage: UNKNOWN
     Dates: start: 20051219, end: 20051223

REACTIONS (4)
  - MYELODYSPLASTIC SYNDROME [None]
  - TREATMENT RELATED SECONDARY MALIGNANCY [None]
  - COMPLICATIONS OF TRANSPLANT SURGERY [None]
  - STEM CELL TRANSPLANT [None]
